FAERS Safety Report 4374858-9 (Version None)
Quarter: 2004Q2

REPORT INFORMATION
  Report Type: 
  Country: None (occurrence: None)
  Receive Date: 20040602
  Receipt Date: 20031001
  Transmission Date: 20050107
  Serious: Yes (Hospitalization)
  Sender: FDA-Public Use
  Company Number: US-JNJFOC-20031100740

PATIENT
  Age: 60 Year
  Sex: Female

DRUGS (9)
  1. PROPULSID [Suspect]
     Dosage: 10 MG, 4 IN 1 DAY
     Dates: start: 19980529
  2. LASIX [Concomitant]
  3. PROZAC [Concomitant]
  4. SYNTHROID [Concomitant]
  5. ZANTAC [Concomitant]
  6. PROCARDIA XL [Concomitant]
  7. DEPAKOTE [Concomitant]
  8. SOMA [Concomitant]
  9. MAXZIDE [Concomitant]

REACTIONS (2)
  - CHEST PAIN [None]
  - ELECTROCARDIOGRAM QT CORRECTED INTERVAL PROLONGED [None]
